FAERS Safety Report 8512583 (Version 2)
Quarter: 2013Q2

REPORT INFORMATION
  Report Type: Report from Study
  Country: FR (occurrence: FR)
  Receive Date: 20120413
  Receipt Date: 20130430
  Transmission Date: 20140414
  Serious: Yes (Hospitalization)
  Sender: FDA-Public Use
  Company Number: PHHY2012FR030904

PATIENT
  Age: 75 Year
  Sex: Male
  Weight: 95 kg

DRUGS (1)
  1. STI571 [Suspect]
     Indication: CHRONIC MYELOID LEUKAEMIA
     Dosage: 300 MG, QD
     Route: 048
     Dates: start: 20100105

REACTIONS (5)
  - Cutis laxa [Unknown]
  - Ectropion [Unknown]
  - Blepharochalasis [Recovered/Resolved]
  - Eyelid oedema [Recovered/Resolved]
  - Hypertrophy [Unknown]
